FAERS Safety Report 23291005 (Version 1)
Quarter: 2023Q4

REPORT INFORMATION
  Report Type: Other
  Country: US (occurrence: None)
  Receive Date: 20231213
  Receipt Date: 20231213
  Transmission Date: 20240110
  Serious: Yes (Hospitalization)
  Sender: FDA-Public Use
  Company Number: US-ROCHE-3359481

PATIENT
  Sex: Male

DRUGS (15)
  1. CELLCEPT [Suspect]
     Active Substance: MYCOPHENOLATE MOFETIL
     Indication: Warm autoimmune haemolytic anaemia
     Route: 048
  2. CYCLOPHOSPHAMIDE [Concomitant]
     Active Substance: CYCLOPHOSPHAMIDE
  3. DEXAMETHASONE [Concomitant]
     Active Substance: DEXAMETHASONE
  4. DOXYCYCLINE [Concomitant]
     Active Substance: DOXYCYCLINE
  5. FOLIC ACID [Concomitant]
     Active Substance: FOLIC ACID
  6. LASIX [Concomitant]
     Active Substance: FUROSEMIDE
  7. PREDNISONE [Concomitant]
     Active Substance: PREDNISONE
  8. ASPIRIN [Concomitant]
     Active Substance: ASPIRIN
  9. CRESTOR [Concomitant]
     Active Substance: ROSUVASTATIN CALCIUM
  10. GABAPENTIN [Concomitant]
     Active Substance: GABAPENTIN
  11. DILTIAZEM [Concomitant]
     Active Substance: DILTIAZEM
  12. HUMALOG [Concomitant]
     Active Substance: INSULIN LISPRO
  13. LANTUS [Concomitant]
     Active Substance: INSULIN GLARGINE
  14. METFORMIN [Concomitant]
     Active Substance: METFORMIN HYDROCHLORIDE
  15. XARELTO [Concomitant]
     Active Substance: RIVAROXABAN

REACTIONS (2)
  - Gangrene [Unknown]
  - Off label use [Unknown]
